FAERS Safety Report 11315831 (Version 1)
Quarter: 2015Q3

REPORT INFORMATION
  Report Type: Spontaneous
  Country: GB (occurrence: GB)
  Receive Date: 20150728
  Receipt Date: 20150728
  Transmission Date: 20151125
  Serious: Yes (Other)
  Sender: FDA-Public Use
  Company Number: GB-ACCORD-032395

PATIENT
  Age: 30 Year
  Sex: Female
  Weight: 116.56 kg

DRUGS (4)
  1. SERTRALINE [Suspect]
     Active Substance: SERTRALINE HYDROCHLORIDE
     Indication: DEPRESSION
     Dosage: INITIALLY STARTED WITH 50 MG ON 26-JAN-2015.
     Route: 048
     Dates: end: 20150406
  2. TERBUTALINE [Concomitant]
     Active Substance: TERBUTALINE
  3. FEXOFENADINE/FEXOFENADINE HYDROCHLORIDE [Concomitant]
  4. BUDESONIDE/FORMOTEROL FUMARATE [Concomitant]

REACTIONS (4)
  - Bronchospasm [Recovered/Resolved]
  - Chest discomfort [Recovered/Resolved]
  - Dyspnoea [Recovered/Resolved]
  - Wheezing [Recovered/Resolved]

NARRATIVE: CASE EVENT DATE: 20150323
